FAERS Safety Report 14184473 (Version 1)
Quarter: 2017Q4

REPORT INFORMATION
  Report Type: Report from Study
  Country: US (occurrence: US)
  Receive Date: 20171113
  Receipt Date: 20171113
  Transmission Date: 20180321
  Serious: Yes (Hospitalization, Other)
  Sender: FDA-Public Use
  Company Number: US-ARIAD PHARMACEUTICALS, INC-2017US009236

PATIENT
  Sex: Female

DRUGS (2)
  1. ICLUSIG [Suspect]
     Active Substance: PONATINIB
     Indication: ACUTE LYMPHOCYTIC LEUKAEMIA
     Dosage: 15 MG, QD
     Route: 048
     Dates: start: 20170818
  2. ICLUSIG [Suspect]
     Active Substance: PONATINIB
     Dosage: 15 MG, BID
     Route: 048

REACTIONS (14)
  - Transplant [Unknown]
  - Pain in jaw [Unknown]
  - Chest pain [Unknown]
  - Fatigue [Unknown]
  - Acute lymphocytic leukaemia recurrent [Unknown]
  - Asthenia [Unknown]
  - Lymphadenopathy [Unknown]
  - Oral candidiasis [Unknown]
  - Platelet count decreased [Unknown]
  - Tongue discolouration [Unknown]
  - Lymphoma [Unknown]
  - Lymphadenopathy mediastinal [Unknown]
  - Back pain [Unknown]
  - Bone lesion [Unknown]
